FAERS Safety Report 9780094 (Version 2)
Quarter: 2013Q4

REPORT INFORMATION
  Report Type: Spontaneous
  Country: GB (occurrence: GB)
  Receive Date: 20131223
  Receipt Date: 20131223
  Transmission Date: 20140711
  Serious: Yes (Other)
  Sender: FDA-Public Use
  Company Number: GB-009507513-1308GBR008600

PATIENT
  Sex: Female
  Weight: 98 kg

DRUGS (1)
  1. ETONOGESTREL IMPLANT- UNKNOWN [Suspect]
     Dosage: UNK
     Route: 059
     Dates: start: 2010, end: 20130814

REACTIONS (2)
  - Device deployment issue [Recovered/Resolved]
  - Local anaesthesia [Recovered/Resolved]
